FAERS Safety Report 18135679 (Version 1)
Quarter: 2020Q3

REPORT INFORMATION
  Report Type: Spontaneous
  Country: US (occurrence: US)
  Receive Date: 20200811
  Receipt Date: 20200811
  Transmission Date: 20201105
  Serious: No
  Sender: FDA-Public Use
  Company Number: US-ROCHE-2533875

PATIENT

DRUGS (1)
  1. IBANDRONIC ACID. [Suspect]
     Active Substance: IBANDRONIC ACID
     Indication: PRODUCT USED FOR UNKNOWN INDICATION
     Dosage: ONGOING; NO
     Route: 065

REACTIONS (3)
  - Illness [Unknown]
  - Gait inability [Unknown]
  - Tooth fracture [Unknown]
